FAERS Safety Report 5907955-4 (Version None)
Quarter: 2008Q4

REPORT INFORMATION
  Report Type: 
  Country: None (occurrence: None)
  Receive Date: 20081003
  Receipt Date: 20080929
  Transmission Date: 20090506
  Serious: Yes (Hospitalization)
  Sender: FDA-Public Use
  Company Number: US-GENENTECH-258271

PATIENT
  Sex: Male
  Weight: 93.333 kg

DRUGS (20)
  1. AVASTIN [Suspect]
     Indication: COLON CANCER
     Dosage: 200 MG, Q2W
     Route: 042
     Dates: start: 20061108
  2. AG-013736 [Suspect]
     Indication: COLON CANCER
     Dosage: 5 MG, BID
     Route: 048
     Dates: start: 20061110
  3. AG-013736 [Suspect]
     Dosage: 3 MG, BID
     Dates: start: 20070207
  4. AG-013736 [Suspect]
     Dosage: 2 MG, BID
     Dates: start: 20070221
  5. OXALIPLATIN [Suspect]
     Indication: COLON CANCER
     Dosage: 170 MG, Q2W
     Route: 042
     Dates: start: 20061108
  6. LEUCOVORIN CALCIUM [Suspect]
     Indication: COLON CANCER
     Dosage: 820 MG, Q2W
     Route: 042
     Dates: start: 20061108
  7. FLUOROURACIL [Suspect]
     Indication: COLON CANCER
     Dosage: 820 MG, Q2W
     Route: 040
     Dates: start: 20061108
  8. FLUOROURACIL [Suspect]
     Dosage: 4900 MG, Q2W
     Route: 042
     Dates: start: 20061108
  9. METFORMIN HCL [Concomitant]
     Indication: DRUG USE FOR UNKNOWN INDICATION
     Dosage: 500 MG, BID
     Route: 048
     Dates: start: 20060718
  10. DYAZIDE [Concomitant]
     Indication: DRUG USE FOR UNKNOWN INDICATION
     Dosage: UNK, BID
     Route: 048
     Dates: start: 20061213, end: 20070126
  11. COMPAZINE [Concomitant]
     Dosage: 15 MG, PRN
     Route: 048
     Dates: start: 20061110, end: 20070301
  12. RESTORIL [Concomitant]
     Indication: DRUG USE FOR UNKNOWN INDICATION
     Dosage: 15 MG, PRN
     Route: 048
     Dates: start: 20061203, end: 20070201
  13. LISINOPRIL [Concomitant]
     Indication: DRUG USE FOR UNKNOWN INDICATION
     Dosage: 10 MG, QD
     Route: 048
     Dates: start: 20061220, end: 20070126
  14. SENOKOT [Concomitant]
     Indication: DRUG USE FOR UNKNOWN INDICATION
     Dosage: 8.6 MG, PRN
     Route: 048
     Dates: start: 20061110, end: 20070126
  15. PROCRIT [Concomitant]
     Indication: DRUG USE FOR UNKNOWN INDICATION
     Dosage: 40000 IU, PRN
     Route: 058
     Dates: start: 20061115
  16. BENADRYL [Concomitant]
     Indication: DRUG USE FOR UNKNOWN INDICATION
     Dosage: 50 MG, UNK
     Route: 042
     Dates: start: 20061108, end: 20070321
  17. DEXAMETHASONE [Concomitant]
     Indication: DRUG USE FOR UNKNOWN INDICATION
     Dosage: 10 MG, UNK
     Route: 042
     Dates: start: 20061108, end: 20070321
  18. CALCIUM GLUCONATE [Concomitant]
     Indication: DRUG USE FOR UNKNOWN INDICATION
     Dosage: 2 G, UNK
     Route: 042
     Dates: start: 20061108, end: 20070321
  19. MAGNESIUM SULFATE [Concomitant]
     Indication: DRUG USE FOR UNKNOWN INDICATION
     Dosage: 2 G, UNK
     Route: 042
     Dates: start: 20061108, end: 20070321
  20. VICODIN [Concomitant]
     Indication: DRUG USE FOR UNKNOWN INDICATION
     Dosage: 1 TABLET, PRN
     Route: 048
     Dates: start: 20061114, end: 20070126

REACTIONS (3)
  - DEHYDRATION [None]
  - ENTERITIS [None]
  - MUCOSAL INFLAMMATION [None]
